FAERS Safety Report 6667631-X (Version None)
Quarter: 2010Q2

REPORT INFORMATION
  Report Type: 
  Country: None (occurrence: None)
  Receive Date: 20100405
  Receipt Date: 20100402
  Transmission Date: 20101027
  Serious: Yes (Death)
  Sender: FDA-Public Use
  Company Number: A0801486A

PATIENT
  Age: 65 Year
  Sex: Male
  Weight: 93.2 kg

DRUGS (1)
  1. AVANDIA [Suspect]
     Indication: DIABETES MELLITUS
     Dosage: 4MG PER DAY
     Route: 048
     Dates: start: 20021001, end: 20050313

REACTIONS (2)
  - CARDIAC ARREST [None]
  - SUDDEN CARDIAC DEATH [None]
